FAERS Safety Report 13737041 (Version 1)
Quarter: 2017Q3

REPORT INFORMATION
  Report Type: Spontaneous
  Country: US (occurrence: US)
  Receive Date: 20170710
  Receipt Date: 20170710
  Transmission Date: 20171127
  Serious: No
  Sender: FDA-Public Use
  Company Number: US-009507513-1706USA010232

PATIENT
  Age: 59 Year
  Sex: Female

DRUGS (2)
  1. ZEPATIER [Suspect]
     Active Substance: ELBASVIR\GRAZOPREVIR
     Indication: CHRONIC HEPATITIS C
     Dosage: 100/50 MG, UNK
     Route: 048
     Dates: start: 201701, end: 20170405
  2. COLESTIPOL HYDROCHLORIDE. [Concomitant]
     Active Substance: COLESTIPOL HYDROCHLORIDE

REACTIONS (1)
  - Hepatitis C RNA fluctuation [Recovered/Resolved]

NARRATIVE: CASE EVENT DATE: 2017
